FAERS Safety Report 24978414 (Version 1)
Quarter: 2025Q1

REPORT INFORMATION
  Report Type: Spontaneous
  Country: KR (occurrence: KR)
  Receive Date: 20250217
  Receipt Date: 20250217
  Transmission Date: 20250409
  Serious: Yes (Other)
  Sender: ORGANON
  Company Number: KR-ORGANON-O2502KOR001176

PATIENT
  Sex: Female

DRUGS (1)
  1. ETONOGESTREL [Suspect]
     Active Substance: ETONOGESTREL
     Route: 059
     Dates: start: 202408

REACTIONS (2)
  - Vaginal haemorrhage [Not Recovered/Not Resolved]
  - Suspected product quality issue [Unknown]

NARRATIVE: CASE EVENT DATE: 20240801
